FAERS Safety Report 21627740 (Version 2)
Quarter: 2022Q4

REPORT INFORMATION
  Report Type: Spontaneous
  Country: AT (occurrence: AT)
  Receive Date: 20221122
  Receipt Date: 20221123
  Transmission Date: 20230112
  Serious: Yes (Other)
  Sender: FDA-Public Use
  Company Number: AT-BAXTER-2022BAX024426

PATIENT
  Sex: Male

DRUGS (6)
  1. CYCLOPHOSPHAMIDE [Suspect]
     Active Substance: CYCLOPHOSPHAMIDE
     Indication: Plasma cell myeloma
     Dosage: 5 CYCLES OF INDUCTION WITH VCD
     Route: 065
     Dates: start: 201507, end: 201511
  2. CYCLOPHOSPHAMIDE [Suspect]
     Active Substance: CYCLOPHOSPHAMIDE
     Indication: Stem cell transplant
  3. BORTEZOMIB [Concomitant]
     Active Substance: BORTEZOMIB
     Indication: Plasma cell myeloma
     Dosage: 5 CYCLES OF INDUCTION WITH VCD
     Route: 065
     Dates: start: 201507, end: 201511
  4. DEXAMETHASONE [Concomitant]
     Active Substance: DEXAMETHASONE
     Indication: Plasma cell myeloma
     Dosage: 5 CYCLES OF INDUCTION WITH VCD
     Route: 065
     Dates: start: 201507, end: 201511
  5. DARATUMUMAB [Concomitant]
     Active Substance: DARATUMUMAB
     Indication: Plasma cell myeloma
     Route: 065
  6. LENALIDOMIDE [Concomitant]
     Active Substance: LENALIDOMIDE
     Indication: Plasma cell myeloma
     Route: 065

REACTIONS (13)
  - Therapy partial responder [Unknown]
  - Thrombocytopenia [Unknown]
  - Plasma cell myeloma recurrent [Unknown]
  - Tissue infiltration [Unknown]
  - Rash vesicular [Unknown]
  - Dyspnoea exertional [Unknown]
  - Oedema peripheral [Unknown]
  - Dehydration [Unknown]
  - Wheelchair user [Unknown]
  - Apathy [Unknown]
  - Sinusitis [Unknown]
  - Asthenia [Unknown]
  - Febrile infection [Unknown]

NARRATIVE: CASE EVENT DATE: 20160101
